FAERS Safety Report 4342606-4 (Version None)
Quarter: 2004Q2

REPORT INFORMATION
  Report Type: 
  Country: None (occurrence: None)
  Receive Date: 20040416
  Receipt Date: 20040406
  Transmission Date: 20050107
  Serious: Yes (Hospitalization)
  Sender: FDA-Public Use
  Company Number: 2004AP02105

PATIENT
  Age: 58 Year
  Sex: Female

DRUGS (6)
  1. TENORMIN [Suspect]
     Indication: HYPERTENSION
     Dates: end: 20040203
  2. FLUOXETINE [Suspect]
     Dates: end: 20040203
  3. GALENIC [Suspect]
     Dates: end: 20040203
  4. CARISOPRODOL [Suspect]
  5. ACETAMINOPHEN [Suspect]
  6. CAFFEINE [Suspect]

REACTIONS (4)
  - ALCOHOL USE [None]
  - ATRIOVENTRICULAR BLOCK COMPLETE [None]
  - MULTIPLE DRUG OVERDOSE [None]
  - SUICIDE ATTEMPT [None]
